FAERS Safety Report 9267270 (Version 1)
Quarter: 2013Q2

REPORT INFORMATION
  Report Type: Spontaneous
  Country: US (occurrence: US)
  Receive Date: 20130502
  Receipt Date: 20130502
  Transmission Date: 20140414
  Serious: No
  Sender: FDA-Public Use
  Company Number: US-BAYER-2013-054740

PATIENT
  Age: 75 Year
  Sex: Male
  Weight: 76.64 kg

DRUGS (5)
  1. ALEVE CAPLET [Suspect]
     Indication: ARTHRITIS
     Dosage: 2 DF, QD
     Route: 048
     Dates: start: 1990
  2. METOPROLOL [Concomitant]
  3. EVISTA [RALOXIFENE HYDROCHLORIDE] [Concomitant]
  4. OMEPRAZOLE [Concomitant]
  5. ASPIRIN [Concomitant]

REACTIONS (1)
  - Incorrect drug administration duration [None]
